FAERS Safety Report 21535626 (Version 2)
Quarter: 2022Q4

REPORT INFORMATION
  Report Type: Report from Study
  Country: CA (occurrence: CA)
  Receive Date: 20221101
  Receipt Date: 20221104
  Transmission Date: 20230112
  Serious: Yes (Other)
  Sender: FDA-Public Use
  Company Number: CA-ABBVIE-22K-028-4381599-00

PATIENT
  Sex: Female

DRUGS (1)
  1. RINVOQ [Suspect]
     Active Substance: UPADACITINIB
     Indication: Rheumatoid arthritis
     Dosage: FORM STRENGTH15 MG
     Route: 048
     Dates: start: 20210422

REACTIONS (11)
  - Seizure [Not Recovered/Not Resolved]
  - Cough [Unknown]
  - Chest discomfort [Unknown]
  - Weight decreased [Not Recovered/Not Resolved]
  - Pneumonia [Unknown]
  - Productive cough [Unknown]
  - Dizziness [Unknown]
  - Pyrexia [Unknown]
  - Tremor [Unknown]
  - Joint range of motion decreased [Unknown]
  - Sitting disability [Unknown]

NARRATIVE: CASE EVENT DATE: 20220101
